FAERS Safety Report 19231169 (Version 1)
Quarter: 2021Q2

REPORT INFORMATION
  Report Type: Report from Study
  Country: US (occurrence: US)
  Receive Date: 20210507
  Receipt Date: 20210507
  Transmission Date: 20210717
  Serious: Yes (Other)
  Sender: FDA-Public Use
  Company Number: US-TEVA-2021-US-1907643

PATIENT
  Age: 16 Year
  Sex: Male

DRUGS (1)
  1. COPAXONE [Suspect]
     Active Substance: GLATIRAMER ACETATE
     Dates: start: 20200608, end: 202012

REACTIONS (3)
  - Dyspnoea [Unknown]
  - Anaphylactic reaction [Unknown]
  - Pruritus [Unknown]

NARRATIVE: CASE EVENT DATE: 2020
